FAERS Safety Report 14497590 (Version 1)
Quarter: 2018Q1

REPORT INFORMATION
  Report Type: Spontaneous
  Country: US (occurrence: US)
  Receive Date: 20180206
  Receipt Date: 20180206
  Transmission Date: 20180509
  Serious: Yes (Hospitalization)
  Sender: FDA-Public Use
  Company Number: None

PATIENT
  Sex: Female

DRUGS (9)
  1. AMLODIPINE [Concomitant]
     Active Substance: AMLODIPINE BESYLATE
  2. LEVEMIR [Concomitant]
     Active Substance: INSULIN DETEMIR
  3. LABETALOL [Concomitant]
     Active Substance: LABETALOL\LABETALOL HYDROCHLORIDE
  4. FUROSEMIDE. [Concomitant]
     Active Substance: FUROSEMIDE
  5. ARANESP [Suspect]
     Active Substance: DARBEPOETIN ALFA
     Route: 058
  6. RABEPRAZOLE [Concomitant]
     Active Substance: RABEPRAZOLE
  7. HUMALOG [Concomitant]
     Active Substance: INSULIN LISPRO
  8. CYCLOSPORINE. [Concomitant]
     Active Substance: CYCLOSPORINE
  9. LISINOPRIL. [Concomitant]
     Active Substance: LISINOPRIL

REACTIONS (3)
  - Rectal haemorrhage [None]
  - Wrong schedule [None]
  - Influenza [None]
